FAERS Safety Report 14340575 (Version 1)
Quarter: 2018Q1

REPORT INFORMATION
  Report Type: Report from Study
  Country: CN (occurrence: CN)
  Receive Date: 20180101
  Receipt Date: 20180101
  Transmission Date: 20180509
  Serious: Yes (Other)
  Sender: FDA-Public Use
  Company Number: CN-ASTELLAS-2017US057121

PATIENT

DRUGS (4)
  1. PREDNISONE. [Suspect]
     Active Substance: PREDNISONE
     Indication: IGA NEPHROPATHY
     Dosage: 0.15 MG/KG, ONCE DAILY
     Route: 065
  2. TACROLIMUS. [Suspect]
     Active Substance: TACROLIMUS
     Indication: MUCOSAL INFECTION
  3. PREDNISONE. [Suspect]
     Active Substance: PREDNISONE
     Indication: MUCOSAL INFECTION
  4. TACROLIMUS. [Suspect]
     Active Substance: TACROLIMUS
     Indication: IGA NEPHROPATHY
     Dosage: 0.05MG/KG/D, TWICE DAILY
     Route: 048

REACTIONS (2)
  - Proteinuria [Recovered/Resolved]
  - Anal fungal infection [Recovering/Resolving]
